FAERS Safety Report 6623786-4 (Version None)
Quarter: 2010Q1

REPORT INFORMATION
  Report Type: 
  Country: None (occurrence: None)
  Receive Date: 20100310
  Receipt Date: 20100305
  Transmission Date: 20100710
  Serious: Yes (Hospitalization)
  Sender: FDA-Public Use
  Company Number: DE-SANOFI-AVENTIS-2010SA012518

PATIENT
  Age: 68 Year
  Sex: Female
  Weight: 80 kg

DRUGS (8)
  1. ARAVA [Suspect]
     Indication: RHEUMATOID ARTHRITIS
     Route: 048
     Dates: start: 20091101, end: 20100205
  2. PANTOZOL [Concomitant]
     Route: 048
     Dates: start: 20090101
  3. CALCILAC KT [Concomitant]
     Indication: OSTEOPOROSIS
     Route: 048
     Dates: start: 20090101
  4. PREDNISOLON [Concomitant]
     Indication: RHEUMATOID ARTHRITIS
     Dosage: SEIT ~1.1.2010 15MG/D, VORHER 7.5 MG, STATIONAR WEGEN GRUNDERKRANKUNG AUF 20MG/D ERHOHT.
     Route: 048
     Dates: start: 20091001, end: 20091201
  5. PREDNISOLON [Concomitant]
     Route: 048
     Dates: start: 20100101, end: 20100201
  6. PREDNISOLON [Concomitant]
     Route: 048
     Dates: start: 20100206
  7. ATACAND [Concomitant]
     Route: 048
     Dates: start: 20080101
  8. IBUPROFEN [Concomitant]
     Indication: POLYMYALGIA RHEUMATICA
     Route: 048
     Dates: start: 20090301, end: 20090901

REACTIONS (6)
  - ABDOMINAL PAIN UPPER [None]
  - DECREASED APPETITE [None]
  - NAUSEA [None]
  - PARAESTHESIA [None]
  - RETCHING [None]
  - TRANSAMINASES INCREASED [None]
